FAERS Safety Report 22613055 (Version 1)
Quarter: 2023Q2

REPORT INFORMATION
  Report Type: Spontaneous
  Country: US (occurrence: US)
  Receive Date: 20230618
  Receipt Date: 20230618
  Transmission Date: 20230722
  Serious: No
  Sender: FDA-Public Use
  Company Number: US-LANTHEUS-LMI-2023-00341

PATIENT
  Age: 6 Decade
  Sex: Male
  Weight: 127 kg

DRUGS (1)
  1. PYLARIFY [Suspect]
     Active Substance: PIFLUFOLASTAT F-18
     Indication: Positron emission tomogram
     Dosage: 9 MILLICURIE
     Route: 042
     Dates: start: 20230321, end: 20230321

REACTIONS (3)
  - Dizziness [Recovered/Resolved]
  - Somnolence [Recovered/Resolved]
  - Gait disturbance [Unknown]

NARRATIVE: CASE EVENT DATE: 20230321
